FAERS Safety Report 7513037-0 (Version None)
Quarter: 2011Q2

REPORT INFORMATION
  Report Type: 
  Country: None (occurrence: None)
  Receive Date: 20110525
  Receipt Date: 20110525
  Transmission Date: 20111010
  Serious: Yes (Life-Threatening, Hospitalization, Other)
  Sender: FDA-Public Use
  Company Number: None

PATIENT
  Age: 64 Year
  Sex: Male
  Weight: 99.7913 kg

DRUGS (1)
  1. LIPITOR [Suspect]
     Indication: BLOOD CHOLESTEROL INCREASED
     Dosage: 80MG 1XD PO
     Route: 048
     Dates: start: 20100115, end: 20100401

REACTIONS (3)
  - MYOPATHY [None]
  - MYOSITIS [None]
  - GAIT DISTURBANCE [None]
